FAERS Safety Report 8610236-1 (Version None)
Quarter: 2012Q3

REPORT INFORMATION
  Report Type: 
  Country: None (occurrence: None)
  Receive Date: 20120810
  Receipt Date: 20120810
  Transmission Date: 20120928
  Serious: Yes (Disabling)
  Sender: FDA-Public Use
  Company Number: None

PATIENT
  Age: 49 Year
  Sex: Female
  Weight: 55.7924 kg

DRUGS (1)
  1. AZITHROMYCIN [Suspect]
     Indication: OTITIS EXTERNA
     Dates: start: 20120801, end: 20120802

REACTIONS (3)
  - VERTIGO [None]
  - OSCILLOPSIA [None]
  - RASH [None]
